FAERS Safety Report 7287616-2 (Version None)
Quarter: 2011Q1

REPORT INFORMATION
  Report Type: 
  Country: None (occurrence: None)
  Receive Date: 20110208
  Receipt Date: 20110208
  Transmission Date: 20110831
  Serious: No
  Sender: FDA-Public Use
  Company Number: None

PATIENT
  Age: 54 Year
  Sex: Female
  Weight: 53.0709 kg

DRUGS (1)
  1. GEMZAR [Suspect]
     Indication: NEOPLASM MALIGNANT

REACTIONS (7)
  - STAPHYLOCOCCAL INFECTION [None]
  - OEDEMA PERIPHERAL [None]
  - CELLULITIS [None]
  - ERYTHEMA [None]
  - PANCYTOPENIA [None]
  - NEUTROPENIA [None]
  - INTERNATIONAL NORMALISED RATIO INCREASED [None]
